FAERS Safety Report 10501039 (Version 3)
Quarter: 2014Q4

REPORT INFORMATION
  Report Type: Spontaneous
  Country: JP (occurrence: JP)
  Receive Date: 20141007
  Receipt Date: 20141122
  Transmission Date: 20150528
  Serious: Yes (Hospitalization, Other)
  Sender: FDA-Public Use
  Company Number: JP-ASTRAZENECA-2014SE74359

PATIENT
  Age: 26649 Day
  Sex: Male
  Weight: 60 kg

DRUGS (13)
  1. DIOVAN [Concomitant]
     Active Substance: VALSARTAN
     Indication: HYPERTENSION
     Route: 048
  2. WARFARIN POTASSIUM [Concomitant]
     Active Substance: WARFARIN POTASSIUM
     Indication: ATRIAL FIBRILLATION
     Route: 048
  3. CETRAXATE HYDROCHLORIDE [Concomitant]
     Active Substance: CETRAXATE HYDROCHLORIDE
     Indication: GASTRIC ULCER
     Route: 048
     Dates: end: 20140903
  4. AMOBAN [Concomitant]
     Active Substance: ZOPICLONE
     Dosage: DOSE UNKNOWN
     Route: 048
  5. HALRACK [Concomitant]
     Active Substance: TRIAZOLAM
     Route: 048
  6. CRESTOR [Suspect]
     Active Substance: ROSUVASTATIN CALCIUM
     Indication: HYPERCHOLESTEROLAEMIA
     Route: 048
     Dates: start: 20130312, end: 20140123
  7. NITRENAL [Concomitant]
     Indication: HYPERTENSION
     Route: 048
  8. MAGLAX [Concomitant]
     Active Substance: MAGNESIUM OXIDE
     Route: 048
  9. RHYTHMY [Concomitant]
     Active Substance: RILMAZAFONE HYDROCHLORIDE
     Dosage: DOSE UNKNOWN
     Route: 048
  10. TAIPROTON [Concomitant]
     Active Substance: LANSOPRAZOLE
     Indication: GASTROOESOPHAGEAL REFLUX DISEASE
     Route: 048
  11. SENNOSIDE [Concomitant]
     Active Substance: SENNOSIDES
     Route: 048
  12. BEZAFIBRATE [Suspect]
     Active Substance: BEZAFIBRATE
     Indication: HYPERCHOLESTEROLAEMIA
     Route: 048
     Dates: start: 20130312, end: 20140123
  13. WARFARIN POTASSIUM [Concomitant]
     Active Substance: WARFARIN POTASSIUM
     Indication: ATRIAL FIBRILLATION
     Route: 048

REACTIONS (2)
  - Fall [Unknown]
  - Blood creatine phosphokinase increased [Recovered/Resolved]

NARRATIVE: CASE EVENT DATE: 20140123
